FAERS Safety Report 7703282-3 (Version None)
Quarter: 2011Q3

REPORT INFORMATION
  Report Type: 
  Country: None (occurrence: None)
  Receive Date: 20110823
  Receipt Date: 20110811
  Transmission Date: 20111222
  Serious: Yes (Hospitalization)
  Sender: FDA-Public Use
  Company Number: IL-SANOFI-AVENTIS-2011SA043784

PATIENT
  Age: 82 Year
  Sex: Female
  Weight: 60 kg

DRUGS (9)
  1. DRONEDARONE HCL [Suspect]
     Indication: ATRIAL FIBRILLATION
     Route: 048
     Dates: start: 20101209, end: 20101212
  2. ASPIRIN [Concomitant]
  3. SIMAVASTATIN [Concomitant]
  4. AMLODIPINE BESYLATE [Concomitant]
  5. OMEPRADEX [Concomitant]
  6. PLAVIX [Concomitant]
  7. FUSID [Concomitant]
  8. DISOTHIAZIDE [Concomitant]
  9. NIFEDIPINE [Concomitant]

REACTIONS (1)
  - ISCHAEMIC STROKE [None]
